FAERS Safety Report 6856580-X (Version None)
Quarter: 2010Q3

REPORT INFORMATION
  Report Type: 
  Country: None (occurrence: None)
  Receive Date: 20100719
  Receipt Date: 20100712
  Transmission Date: 20110219
  Serious: Yes (Other)
  Sender: FDA-Public Use
  Company Number: FR-PFIZER INC-2010086498

PATIENT
  Age: 74 Year
  Sex: Male

DRUGS (5)
  1. TAHOR [Suspect]
     Indication: HYPERCHOLESTEROLAEMIA
     Dosage: 10 MG, UNK
  2. KARDEGIC [Concomitant]
     Dosage: UNK
  3. FLECAINIDE ACETATE [Concomitant]
     Dosage: UNK
  4. OLMETEC [Concomitant]
     Dosage: UNK
  5. PARACETAMOL [Concomitant]
     Dosage: UNK

REACTIONS (2)
  - DYSPNOEA [None]
  - MALAISE [None]
